FAERS Safety Report 4330603-4 (Version None)
Quarter: 2004Q1

REPORT INFORMATION
  Report Type: 
  Country: None (occurrence: None)
  Receive Date: 20040329
  Receipt Date: 20040324
  Transmission Date: 20041129
  Serious: Yes (Hospitalization)
  Sender: FDA-Public Use
  Company Number: ENT 2004-0061

PATIENT
  Age: 56 Year
  Sex: Male

DRUGS (1)
  1. COMTAN [Suspect]
     Dosage: ORAL
     Route: 048
     Dates: end: 20040218

REACTIONS (2)
  - DELIRIUM [None]
  - PARANOIA [None]
